FAERS Safety Report 8418575-4 (Version None)
Quarter: 2012Q2

REPORT INFORMATION
  Report Type: 
  Country: None (occurrence: None)
  Receive Date: 20120607
  Receipt Date: 20120604
  Transmission Date: 20120825
  Serious: Yes (Hospitalization)
  Sender: FDA-Public Use
  Company Number: US-PFIZER INC-2012134687

PATIENT
  Sex: Male
  Weight: 20.408 kg

DRUGS (5)
  1. GENOTROPIN [Suspect]
     Dosage: 0.6 MG, 1X/DAY
  2. SYNTHROID [Concomitant]
     Dosage: UNK
  3. DEXAMETHASONE [Concomitant]
     Dosage: UNK
  4. GENOTROPIN [Suspect]
     Dosage: 0.5 MG, 1X/DAY
  5. GENOTROPIN [Suspect]
     Indication: HYPOPITUITARISM
     Dosage: UNK

REACTIONS (1)
  - HEADACHE [None]
